FAERS Safety Report 4738346-X (Version None)
Quarter: 2005Q3

REPORT INFORMATION
  Report Type: 
  Country: None (occurrence: None)
  Receive Date: 20050803
  Receipt Date: 20050718
  Transmission Date: 20060218
  Serious: Yes (Hospitalization)
  Sender: FDA-Public Use
  Company Number: 2005001344

PATIENT
  Age: 41 Year
  Sex: Male

DRUGS (7)
  1. ERLOTINIB HCL (TABLET) [Suspect]
     Indication: NON-SMALL CELL LUNG CANCER
     Dosage: 150 MG (QD), ORAL
     Route: 048
     Dates: start: 20050514
  2. LOXOPROFEN SODIUM (LOXOPROFEN SODIUM) [Concomitant]
  3. TEPTRENONE (TEPRENONE0 [Concomitant]
  4. MAGNESIUM OXIDE (MAGNESIUM OXIDE) [Concomitant]
  5. MORPHINE [Concomitant]
  6. LORATADINE [Concomitant]
  7. BETAMETHASONE SODIUM PHOSPHATE [Concomitant]

REACTIONS (1)
  - PNEUMOTHORAX [None]
